FAERS Safety Report 17921024 (Version 2)
Quarter: 2020Q4

REPORT INFORMATION
  Report Type: Spontaneous
  Country: US (occurrence: US)
  Receive Date: 20200622
  Receipt Date: 20201211
  Transmission Date: 20210113
  Serious: Yes (Other)
  Sender: FDA-Public Use
  Company Number: US-GILEAD-2020-0474254

PATIENT
  Sex: Male

DRUGS (3)
  1. ODEFSEY [Concomitant]
     Active Substance: EMTRICITABINE\RILPIVIRINE HYDROCHLORIDE\TENOFOVIR ALAFENAMIDE FUMARATE
  2. ATRIPLA [Suspect]
     Active Substance: EFAVIRENZ\EMTRICITABINE\TENOFOVIR DISOPROXIL FUMARATE
     Indication: HIV INFECTION
     Dosage: UNK
     Route: 048
     Dates: start: 2006, end: 20170216
  3. VITAMIN D [VITAMIN D NOS] [Concomitant]
     Active Substance: VITAMIN D NOS

REACTIONS (10)
  - Hip arthroplasty [Unknown]
  - Rib fracture [Recovered/Resolved]
  - Bone loss [Not Recovered/Not Resolved]
  - Tooth loss [Not Recovered/Not Resolved]
  - Bone density decreased [Unknown]
  - Shoulder arthroplasty [Unknown]
  - Limb injury [Not Recovered/Not Resolved]
  - Osteoporosis [Not Recovered/Not Resolved]
  - Joint injury [Not Recovered/Not Resolved]
  - Fracture [Unknown]

NARRATIVE: CASE EVENT DATE: 2006
